FAERS Safety Report 21479329 (Version 2)
Quarter: 2022Q4

REPORT INFORMATION
  Report Type: Spontaneous
  Country: US (occurrence: US)
  Receive Date: 20221019
  Receipt Date: 20221118
  Transmission Date: 20230112
  Serious: Yes (Hospitalization)
  Sender: FDA-Public Use
  Company Number: US-AMERICAN REGENT INC-2022002998

PATIENT
  Age: 87 Year
  Sex: Female

DRUGS (13)
  1. VENOFER [Suspect]
     Active Substance: IRON SUCROSE
     Indication: Iron deficiency anaemia
     Dosage: 200 MILLIGRAM
     Route: 042
     Dates: start: 20210201, end: 20210201
  2. VENOFER [Suspect]
     Active Substance: IRON SUCROSE
     Dosage: 200 MILLIGRAM
     Route: 042
     Dates: start: 20210413, end: 20210413
  3. VENOFER [Suspect]
     Active Substance: IRON SUCROSE
     Dosage: 300 MILLIGRAM
     Route: 042
     Dates: start: 20210602, end: 20210602
  4. VENOFER [Suspect]
     Active Substance: IRON SUCROSE
     Dosage: 300 MILLIGRAM
     Route: 042
     Dates: start: 20210714, end: 20210714
  5. VENOFER [Suspect]
     Active Substance: IRON SUCROSE
     Dosage: 300 MILLIGRAM
     Route: 042
     Dates: start: 20211124, end: 20211124
  6. VENOFER [Suspect]
     Active Substance: IRON SUCROSE
     Dosage: 500 MILLIGRAM
     Route: 042
  7. VENOFER [Suspect]
     Active Substance: IRON SUCROSE
     Dosage: 500 MILLIGRAM IN SODIUM CHLORIDE 0.9% 250ML
     Route: 042
     Dates: start: 20221012, end: 20221012
  8. AMLODIPINE [Concomitant]
     Active Substance: AMLODIPINE BESYLATE
     Indication: Hypertension
     Dosage: 10 MILLIGRAM
     Route: 048
  9. ASPIRIN [Concomitant]
     Active Substance: ASPIRIN
     Indication: Product used for unknown indication
     Dosage: 81 MILLIGRAM
     Route: 048
  10. ATORVASTATIN [Concomitant]
     Active Substance: ATORVASTATIN
     Indication: Dyslipidaemia
     Dosage: 40 MILLIGRAM
     Route: 048
  11. LISINOPRIL [Concomitant]
     Active Substance: LISINOPRIL
     Indication: Hypertension
     Dosage: 2.5 MILLIGRAM
     Route: 048
  12. VITAMIN B12 [Concomitant]
     Active Substance: CYANOCOBALAMIN
     Indication: Vitamin B12 deficiency
     Dosage: 1000 MICROGRAM
     Route: 048
  13. OMEPRAZOLE [Concomitant]
     Active Substance: OMEPRAZOLE
     Indication: Gastrooesophageal reflux disease
     Dosage: 40 MILLIGRAM
     Route: 048

REACTIONS (7)
  - Dysarthria [Recovered/Resolved]
  - Dehydration [Recovered/Resolved]
  - Peripheral swelling [Recovered/Resolved]
  - Nausea [Recovered/Resolved]
  - Hypotension [Recovered/Resolved]
  - Loss of consciousness [Unknown]
  - Syncope [Recovered/Resolved]

NARRATIVE: CASE EVENT DATE: 20221012
